FAERS Safety Report 4683417-X (Version None)
Quarter: 2005Q2

REPORT INFORMATION
  Report Type: 
  Country: None (occurrence: None)
  Receive Date: 20050602
  Receipt Date: 20050329
  Transmission Date: 20051028
  Serious: No
  Sender: FDA-Public Use
  Company Number: 200510635BWH

PATIENT
  Age: 26 Year
  Sex: Male

DRUGS (2)
  1. LEVITRA [Suspect]
     Dosage: 10 MG, TOTAL DAILY, NI
  2. MULITIVITAMINS [Concomitant]

REACTIONS (3)
  - PARAESTHESIA [None]
  - SEMEN VISCOSITY INCREASED [None]
  - SEMEN VOLUME INCREASED [None]
